FAERS Safety Report 12770721 (Version 1)
Quarter: 2016Q3

REPORT INFORMATION
  Report Type: Spontaneous
  Country: US (occurrence: US)
  Receive Date: 20160921
  Receipt Date: 20160921
  Transmission Date: 20161109
  Serious: Yes (Hospitalization, Disabling, Other)
  Sender: FDA-Public Use
  Company Number: None

PATIENT

DRUGS (1)
  1. HYOSCYAMINE. [Suspect]
     Active Substance: HYOSCYAMINE
     Indication: GASTROINTESTINAL PAIN
     Route: 048
     Dates: start: 20160525, end: 20160616

REACTIONS (11)
  - Disorientation [None]
  - Mental impairment [None]
  - Dizziness [None]
  - Feeling abnormal [None]
  - Slow speech [None]
  - Hallucination [None]
  - Impaired work ability [None]
  - Vision blurred [None]
  - Salivary hypersecretion [None]
  - Overdose [None]
  - Depression [None]

NARRATIVE: CASE EVENT DATE: 20160618
